FAERS Safety Report 24767685 (Version 2)
Quarter: 2025Q1

REPORT INFORMATION
  Report Type: Report from Study
  Country: US (occurrence: US)
  Receive Date: 20241223
  Receipt Date: 20250220
  Transmission Date: 20250408
  Serious: Yes (Death, Other)
  Sender: UCB
  Company Number: US-UCBSA-2024065771

PATIENT
  Sex: Male
  Weight: 27 kg

DRUGS (2)
  1. FINTEPLA [Suspect]
     Active Substance: FENFLURAMINE
     Indication: Lennox-Gastaut syndrome
     Dosage: 2.5 MILLILITER, 2X/DAY (BID)
     Dates: start: 20240927
  2. FINTEPLA [Suspect]
     Active Substance: FENFLURAMINE
     Dosage: 5, 2X/DAY (BID)

REACTIONS (4)
  - Death [Fatal]
  - Seizure [Unknown]
  - Feeding tube user [Unknown]
  - Hospice care [Not Recovered/Not Resolved]

NARRATIVE: CASE EVENT DATE: 20240101
